FAERS Safety Report 5230311-1 (Version None)
Quarter: 2007Q1

REPORT INFORMATION
  Report Type: 
  Country: None (occurrence: None)
  Receive Date: 20070201
  Receipt Date: 20070119
  Transmission Date: 20070707
  Serious: Yes (Death)
  Sender: FDA-Public Use
  Company Number: 2006EU002844

PATIENT
  Age: 2 Year
  Sex: Female
  Weight: 12 kg

DRUGS (6)
  1. PROGRAF [Suspect]
     Indication: LIVER TRANSPLANT
     Dosage: 0.8 MG, BID, ORAL
     Route: 048
     Dates: start: 20060301
  2. FERROUS FUMARATE [Suspect]
     Dosage: 33 MG, BID, ORAL
     Route: 048
     Dates: start: 20060301
  3. UVESTEROL (ERGOCALCIFEROL, RETINOL, ASCORBIC ACID, TOCOPHEROL) [Suspect]
     Dosage: UNKNOWN/D, ORAL
     Route: 048
  4. ZOVIRAX [Suspect]
     Dosage: 250 MG, QID, ORAL
     Route: 048
     Dates: start: 20060401
  5. SPECIAFOLDINE (FOLIC ACID) [Suspect]
     Dosage: 5 MG, 3XWEEKLY, ORAL
     Route: 048
     Dates: start: 20060301
  6. BACTRIM PEDIATRIC [Suspect]
     Dosage: 6 ML, 3X WEEKLY, ORAL
     Route: 048
     Dates: start: 20060301

REACTIONS (6)
  - ANGIOEDEMA [None]
  - ASPHYXIA [None]
  - BLOOD IMMUNOGLOBULIN E INCREASED [None]
  - CARDIO-RESPIRATORY ARREST [None]
  - CYANOSIS [None]
  - FOOD ALLERGY [None]
